FAERS Safety Report 8581156-6 (Version None)
Quarter: 2012Q3

REPORT INFORMATION
  Report Type: 
  Country: None (occurrence: None)
  Receive Date: 20120809
  Receipt Date: 20120731
  Transmission Date: 20120928
  Serious: Yes (Hospitalization, Other)
  Sender: FDA-Public Use
  Company Number: US-COVIDIEN/TYCO HEALTHCARE/MALLINCKRODT-T201202985

PATIENT
  Age: 38 Year
  Sex: Male

DRUGS (6)
  1. AMANTADINE HCL [Suspect]
     Indication: HYPOXIC-ISCHAEMIC ENCEPHALOPATHY
     Dosage: UNK
  2. DIAZEPAM [Suspect]
     Indication: NECK PAIN
  3. METHADOSE [Suspect]
     Indication: BACK PAIN
     Dosage: UNK
  4. METHYLIN [Suspect]
     Indication: REHABILITATION THERAPY
     Dosage: UNK
  5. DIAZEPAM [Suspect]
     Indication: BACK PAIN
  6. METHADOSE [Suspect]
     Indication: NECK PAIN

REACTIONS (9)
  - DRUG DIVERSION [None]
  - PNEUMONIA ASPIRATION [None]
  - RENAL FAILURE ACUTE [None]
  - BLOOD PRESSURE DECREASED [None]
  - HYPOXIC-ISCHAEMIC ENCEPHALOPATHY [None]
  - HALLUCINATION [None]
  - HEPATIC ENZYME INCREASED [None]
  - RHABDOMYOLYSIS [None]
  - LOSS OF CONSCIOUSNESS [None]
